FAERS Safety Report 9896127 (Version 1)
Quarter: 2014Q1

REPORT INFORMATION
  Report Type: Spontaneous
  Country: US (occurrence: US)
  Receive Date: 20140213
  Receipt Date: 20140213
  Transmission Date: 20141002
  Serious: No
  Sender: FDA-Public Use
  Company Number: US-BRISTOL-MYERS SQUIBB COMPANY-19714757

PATIENT
  Age: 61 Year
  Sex: Female
  Weight: 87.98 kg

DRUGS (12)
  1. ABATACEPT SUBQ INJECTION 125MG/ML [Suspect]
     Indication: RHEUMATOID ARTHRITIS
     Dosage: PES (4 PACK)
     Route: 058
  2. PREDNISONE [Concomitant]
     Dosage: TABS
     Dates: start: 2013
  3. METHOTREXATE TABS [Concomitant]
     Dosage: TABS
     Dates: start: 2013
  4. VITAMIN B1 [Concomitant]
     Dosage: TABS
  5. VITAMIN D3 [Concomitant]
     Dosage: 1DF=10000 UNIT ?CAPS
  6. FOLIC ACID [Concomitant]
     Dosage: TABS
  7. NAPROXEN [Concomitant]
     Dosage: TABS
  8. MULTIVITAMIN [Concomitant]
     Dosage: CAPS
  9. CALTRATE [Concomitant]
     Dosage: TABS?1DF=600-800 UNIT NOS
  10. OMEPRAZOLE [Concomitant]
     Dosage: CAPS
  11. MELOXICAM [Concomitant]
     Dosage: TABS
  12. SIMVASTATIN TAB [Concomitant]

REACTIONS (1)
  - Rheumatoid arthritis [Unknown]
